FAERS Safety Report 24467027 (Version 2)
Quarter: 2024Q4

REPORT INFORMATION
  Report Type: Spontaneous
  Country: DE (occurrence: DE)
  Receive Date: 20241018
  Receipt Date: 20241120
  Transmission Date: 20250115
  Serious: Yes (Hospitalization, Disabling)
  Sender: FRESENIUS KABI
  Company Number: DE-sintetica-004772

PATIENT
  Age: 74 Year
  Sex: Female
  Weight: 80 kg

DRUGS (6)
  1. ROPIVACAINE [Suspect]
     Active Substance: ROPIVACAINE
     Indication: Pain
     Dosage: 2ML (4MG) INFILTRATION OF THE REGION OF L4/L5?ROUTE OF ADMINISTRATION: INFILTRATION
     Dates: start: 20240812, end: 20240812
  2. ROPIVACAINE [Suspect]
     Active Substance: ROPIVACAINE
     Dosage: INFILTRATION OF THE REGION OF L4/L5?ROUTE OF ADMIN: INFILTRATION
  3. DEXAMETHASONE [Concomitant]
     Active Substance: DEXAMETHASONE
     Indication: Pain
     Dosage: INFILTRATION OF THE REGION OF L4/L5?INFILTRATION
  4. TILIDINE [Concomitant]
     Active Substance: TILIDINE
     Indication: Pain
  5. MORPHINE [Concomitant]
     Active Substance: MORPHINE
     Indication: Pain
  6. LEVOTHYROXINE SODIUM [Concomitant]
     Active Substance: LEVOTHYROXINE SODIUM
     Indication: Product used for unknown indication

REACTIONS (1)
  - Haemorrhage [Not Recovered/Not Resolved]
